FAERS Safety Report 7662895 (Version 3)
Quarter: 2012Q4

REPORT INFORMATION
  Report Type: 
  Country: JP (occurrence: US)
  Receive Date: 20101110
  Receipt Date: 20121018
  Transmission Date: 20130627
  Serious: Yes (Hospitalization, Other)
  Sender: FDA-Public Use
  Company Number: US-JNJFOC-20100805844

PATIENT
  Age: 52 None
  Sex: Male

DRUGS (6)
  1. LEVAQUIN [Suspect]
     Indication: INFECTION PROPHYLAXIS
     Route: 048
     Dates: start: 2008, end: 2008
  2. LEVAQUIN [Suspect]
     Indication: INFECTION PROPHYLAXIS
     Route: 042
     Dates: start: 20080305, end: 20080307
  3. LIPITOR [Concomitant]
  4. PLAVIX [Concomitant]
  5. RANEXA [Concomitant]
  6. ASPIRIN [Concomitant]

REACTIONS (6)
  - Periarthritis [Recovering/Resolving]
  - Joint injury [Unknown]
  - Bursitis [Unknown]
  - Tendon rupture [Unknown]
  - Rotator cuff syndrome [Recovered/Resolved]
  - Rotator cuff syndrome [Unknown]
